FAERS Safety Report 19867379 (Version 2)
Quarter: 2021Q3

REPORT INFORMATION
  Report Type: Spontaneous
  Country: CN (occurrence: CN)
  Receive Date: 20210922
  Receipt Date: 20210928
  Transmission Date: 20211014
  Serious: No
  Sender: FDA-Public Use
  Company Number: ALC2021CN005249

PATIENT
  Age: 31 Year
  Sex: Female
  Weight: 56 kg

DRUGS (1)
  1. SYSTANE (HYPROMELLOSE 2910 (4000 MPA.S)) [Suspect]
     Active Substance: HYPROMELLOSE 2910 (4000 MPA.S)
     Indication: DRY EYE
     Dosage: 1.000 DRP, TID
     Route: 031
     Dates: start: 20210825, end: 20210826

REACTIONS (1)
  - Xerophthalmia [Recovering/Resolving]

NARRATIVE: CASE EVENT DATE: 20210826
